FAERS Safety Report 9862117 (Version 1)
Quarter: 2014Q1

REPORT INFORMATION
  Report Type: Spontaneous
  Country: US (occurrence: None)
  Receive Date: 20140131
  Receipt Date: 20140131
  Transmission Date: 20141002
  Serious: Yes (Hospitalization)
  Sender: FDA-Public Use
  Company Number: None

PATIENT
  Age: 64 Year
  Sex: Male
  Weight: 126.6 kg

DRUGS (1)
  1. TRIMETHOPRIM [Suspect]
     Route: 048
     Dates: start: 20121016, end: 20131025

REACTIONS (3)
  - Vomiting [None]
  - Tubulointerstitial nephritis [None]
  - Renal failure acute [None]
